FAERS Safety Report 10858047 (Version 2)
Quarter: 2015Q1

REPORT INFORMATION
  Report Type: Spontaneous
  Country: US (occurrence: US)
  Receive Date: 20150223
  Receipt Date: 20150224
  Transmission Date: 20150721
  Serious: Yes (Hospitalization, Other)
  Sender: FDA-Public Use
  Company Number: US-GLAXOSMITHKLINE-US2015023115

PATIENT
  Age: 66 Year
  Sex: Female

DRUGS (8)
  1. IBUPROFEN. [Concomitant]
     Active Substance: IBUPROFEN
  2. METFORMIN [Concomitant]
     Active Substance: METFORMIN HYDROCHLORIDE
  3. LOSARTAN [Concomitant]
     Active Substance: LOSARTAN
  4. LOVAZA [Suspect]
     Active Substance: OMEGA-3-ACID ETHYL ESTERS
     Indication: BLOOD CHOLESTEROL INCREASED
  5. ASPIRIN. [Concomitant]
     Active Substance: ASPIRIN
  6. CETIRIZINE [Concomitant]
     Active Substance: CETIRIZINE HYDROCHLORIDE
  7. LOVAZA [Suspect]
     Active Substance: OMEGA-3-ACID ETHYL ESTERS
     Indication: BLOOD TRIGLYCERIDES INCREASED
     Dosage: 1 G
     Route: 048
     Dates: start: 2011
  8. ALIGN PROBIOTIC [Concomitant]

REACTIONS (9)
  - Colon cancer [Recovered/Resolved]
  - Atrial fibrillation [Recovered/Resolved]
  - Blood iron decreased [Recovered/Resolved]
  - Memory impairment [Unknown]
  - Pain [Recovered/Resolved]
  - Blood potassium decreased [Unknown]
  - Blood magnesium decreased [Recovering/Resolving]
  - Diarrhoea [Recovering/Resolving]
  - Colon operation [Unknown]

NARRATIVE: CASE EVENT DATE: 201403
